FAERS Safety Report 6429642-9 (Version None)
Quarter: 2009Q4

REPORT INFORMATION
  Report Type: 
  Country: None (occurrence: None)
  Receive Date: 20091106
  Receipt Date: 20091104
  Transmission Date: 20100525
  Serious: Yes (Hospitalization)
  Sender: FDA-Public Use
  Company Number: US-ASTRAZENECA-2007UW11006

PATIENT
  Age: 5463 Day
  Sex: Male
  Weight: 143.3 kg

DRUGS (26)
  1. SEROQUEL [Suspect]
     Indication: SCHIZOPHRENIA
     Dosage: 25 - 400 MG
     Route: 048
     Dates: start: 20020505, end: 20040201
  2. SEROQUEL [Suspect]
     Indication: DEPRESSION
     Dosage: 25 - 400 MG
     Route: 048
     Dates: start: 20020505, end: 20040201
  3. SEROQUEL [Suspect]
     Dosage: 150-400 MG UNKNOWN
     Route: 048
     Dates: start: 20020505, end: 20031104
  4. SEROQUEL [Suspect]
     Dosage: 150-400 MG UNKNOWN
     Route: 048
     Dates: start: 20020505, end: 20031104
  5. SEROQUEL [Suspect]
     Dosage: 800 MG
     Route: 048
     Dates: start: 20031105, end: 20040204
  6. SEROQUEL [Suspect]
     Dosage: 800 MG
     Route: 048
     Dates: start: 20031105, end: 20040204
  7. SEROQUEL [Suspect]
     Route: 048
     Dates: start: 20050217
  8. SEROQUEL [Suspect]
     Route: 048
     Dates: start: 20050217
  9. RITALIN [Concomitant]
     Route: 065
  10. ADDERALL 10 [Concomitant]
     Route: 065
  11. PAXIL [Concomitant]
     Route: 065
  12. HALDOL [Concomitant]
     Route: 065
  13. RISPERDAL [Concomitant]
     Indication: DEPRESSION
     Route: 048
     Dates: start: 20020505, end: 20021001
  14. RISPERDAL [Concomitant]
     Indication: SCHIZOPHRENIA
     Route: 048
     Dates: start: 20020505, end: 20021001
  15. RISPERDAL [Concomitant]
     Route: 065
  16. RISPERDAL [Concomitant]
     Route: 065
  17. PHENOBARBITAL [Concomitant]
     Route: 065
  18. ALLEGRA [Concomitant]
     Route: 065
  19. GEODON [Concomitant]
     Dosage: 80-160 MG
     Route: 048
     Dates: start: 20040304
  20. GEODON [Concomitant]
     Route: 048
  21. METFORMIN [Concomitant]
     Route: 048
  22. DILEX G [Concomitant]
     Route: 065
  23. INVEGA [Concomitant]
     Route: 048
  24. LISINOPRIL [Concomitant]
     Route: 048
  25. CYLERT [Concomitant]
     Route: 065
  26. HYDROCORTISONE [Concomitant]
     Route: 065

REACTIONS (9)
  - ABNORMAL BEHAVIOUR [None]
  - CHEST DISCOMFORT [None]
  - ESSENTIAL HYPERTENSION [None]
  - HALLUCINATION, VISUAL [None]
  - IMPULSE-CONTROL DISORDER [None]
  - NASAL CONGESTION [None]
  - SCHIZOPHRENIA, PARANOID TYPE [None]
  - TYPE 1 DIABETES MELLITUS [None]
  - WEIGHT INCREASED [None]
